FAERS Safety Report 7604721-9 (Version None)
Quarter: 2011Q3

REPORT INFORMATION
  Report Type: 
  Country: None (occurrence: None)
  Receive Date: 20110712
  Receipt Date: 20110629
  Transmission Date: 20111222
  Serious: Yes (Other)
  Sender: FDA-Public Use
  Company Number: FR-MYLANLABS-2011S1013624

PATIENT
  Age: 73 Year
  Sex: Male

DRUGS (8)
  1. AZATHIOPRINE [Suspect]
     Indication: ARTHRITIS
     Route: 065
  2. AZATHIOPRINE [Suspect]
     Dosage: 100MG DAILY; DECREASED TO 50MG DAILY AFTER WHIPPLE'S DISEASE DIAGNOSIS
     Route: 065
  3. CEFTRIAXONE [Suspect]
     Indication: WHIPPLE'S DISEASE
     Route: 065
  4. AZATHIOPRINE [Suspect]
     Indication: WHIPPLE'S DISEASE
     Route: 065
  5. HYDROXYCHLOROQUINE SULFATE [Suspect]
     Indication: WHIPPLE'S DISEASE
     Route: 065
  6. AZATHIOPRINE [Suspect]
     Dosage: 50MG DAILY
     Route: 065
  7. AZATHIOPRINE [Suspect]
     Dosage: 50MG DAILY
     Route: 065
  8. AZATHIOPRINE [Suspect]
     Dosage: 100MG DAILY; DECREASED TO 50MG DAILY AFTER WHIPPLE'S DISEASE DIAGNOSIS
     Route: 065

REACTIONS (2)
  - WHIPPLE'S DISEASE [None]
  - IMMUNE RECONSTITUTION SYNDROME [None]
